FAERS Safety Report 9128603 (Version 2)
Quarter: 2013Q1

REPORT INFORMATION
  Report Type: Spontaneous
  Country: KR (occurrence: KR)
  Receive Date: 20130228
  Receipt Date: 20130315
  Transmission Date: 20140127
  Serious: Yes (Other)
  Sender: FDA-Public Use
  Company Number: KR-JNJFOC-20130111549

PATIENT
  Age: 70 Year
  Sex: Male

DRUGS (3)
  1. DUROGESIC D-TRANS [Suspect]
     Indication: BACK INJURY
     Route: 062
  2. DUROGESIC D-TRANS [Suspect]
     Indication: BACK INJURY
     Dosage: 12.5 UG/HR + 25 UG/HR
     Route: 062
  3. ULTRACET [Concomitant]
     Indication: ANALGESIC THERAPY
     Route: 048

REACTIONS (3)
  - Drug dependence [Unknown]
  - Incorrect dose administered [Unknown]
  - Intentional drug misuse [Unknown]
